FAERS Safety Report 8379185-0 (Version None)
Quarter: 2012Q1

REPORT INFORMATION
  Report Type: 
  Country: None (occurrence: None)
  Receive Date: 20120323
  Receipt Date: 20110804
  Transmission Date: 20120608
  Serious: Yes (Hospitalization)
  Sender: FDA-Public Use
  Company Number: 163-21880-11051009

PATIENT
  Age: 76 Year
  Sex: Male
  Weight: 87.0906 kg

DRUGS (13)
  1. PRILOSEC [Concomitant]
  2. DEXAMETHASONE [Concomitant]
  3. REVLIMID [Suspect]
     Indication: MULTIPLE MYELOMA
     Dosage: 25 MG, DAILY X 14 DAYS, PO
     Route: 048
     Dates: start: 20101208, end: 20110114
  4. ASPIRIN [Concomitant]
  5. ACTO PLUS (MOPADAY) [Concomitant]
  6. KLOR-CON [Concomitant]
  7. LISINOPRIL [Concomitant]
  8. HYDROCHLOROTHIAZIDE [Concomitant]
  9. LEVOTHYROXINE SODIUM [Concomitant]
  10. LOSARTAN POTASSIUM [Concomitant]
  11. MULTIVITAMIN [Concomitant]
  12. OMEPRAZOLE [Concomitant]
  13. DIOVAN [Concomitant]

REACTIONS (1)
  - DEVICE RELATED INFECTION [None]
